FAERS Safety Report 7484365-2 (Version None)
Quarter: 2011Q2

REPORT INFORMATION
  Report Type: 
  Country: None (occurrence: None)
  Receive Date: 20110517
  Receipt Date: 20110510
  Transmission Date: 20111010
  Serious: Yes (Hospitalization)
  Sender: FDA-Public Use
  Company Number: JP-BRISTOL-MYERS SQUIBB COMPANY-15741127

PATIENT
  Age: 51 Year
  Sex: Male

DRUGS (2)
  1. S-1 [Suspect]
     Indication: GASTRIC CANCER
     Dosage: TAB
     Route: 048
  2. CISPLATIN [Suspect]
     Indication: GASTRIC CANCER
     Route: 041

REACTIONS (1)
  - FEMORAL ARTERY OCCLUSION [None]
